FAERS Safety Report 15465370 (Version 1)
Quarter: 2018Q4

REPORT INFORMATION
  Report Type: Report from Study
  Country: DE (occurrence: DE)
  Receive Date: 20181004
  Receipt Date: 20181004
  Transmission Date: 20190204
  Serious: Yes (Hospitalization)
  Sender: FDA-Public Use
  Company Number: DE-TEVA-2018-DE-961000

PATIENT
  Age: 73 Year
  Sex: Female
  Weight: 72.4 kg

DRUGS (4)
  1. PACLITAXEL. [Suspect]
     Active Substance: PACLITAXEL
     Indication: BREAST CANCER METASTATIC
     Dosage: ALSO RECEIVED SAME DOSE 80 MG/M2 ON 02/DEC/2011, 28/DEC/2011, 18/JAN/2012, 27/JAN/2012, 08/FEB/2012,
     Route: 042
     Dates: start: 20111111
  2. BONVIVA [Suspect]
     Active Substance: IBANDRONATE SODIUM
     Indication: PRODUCT USED FOR UNKNOWN INDICATION
     Dosage: DAILY DOSE: 6 MG MILLIGRAM(S) EVERY 4 WEEK
     Route: 042
     Dates: start: 20111107
  3. AVASTIN [Suspect]
     Active Substance: BEVACIZUMAB
     Indication: BREAST CANCER METASTATIC
     Dosage: DAILY DOSE: 15 MG/KG MILLIGRAM(S)/KILOGRAM EVERY 21 DAY
     Route: 042
     Dates: start: 20111111
  4. AVASTIN [Suspect]
     Active Substance: BEVACIZUMAB
     Dosage: DAILY DOSE: 15 MG/KG MILLIGRAM(S)/KILOGRAM EVERY 21 DAY
     Route: 042
     Dates: start: 20111202, end: 20111202

REACTIONS (2)
  - Pain [Recovered/Resolved]
  - General physical health deterioration [Recovered/Resolved]

NARRATIVE: CASE EVENT DATE: 20111211
